FAERS Safety Report 17106502 (Version 1)
Quarter: 2019Q4

REPORT INFORMATION
  Report Type: Spontaneous
  Country: US (occurrence: US)
  Receive Date: 20191203
  Receipt Date: 20191203
  Transmission Date: 20200122
  Serious: Yes (Other)
  Sender: FDA-Public Use
  Company Number: US-PFIZER INC-2019516750

PATIENT
  Age: 51 Year
  Sex: Female
  Weight: 122.4 kg

DRUGS (1)
  1. AROMASIN [Suspect]
     Active Substance: EXEMESTANE
     Indication: NEOPLASM MALIGNANT
     Dosage: 25 MG, 1X/DAY (AT NIGHT BEDTIME)

REACTIONS (7)
  - Intervertebral disc protrusion [Not Recovered/Not Resolved]
  - Hypertension [Not Recovered/Not Resolved]
  - Pain [Unknown]
  - Arthralgia [Unknown]
  - Osteoporosis [Not Recovered/Not Resolved]
  - Bone pain [Unknown]
  - Nerve compression [Not Recovered/Not Resolved]
